FAERS Safety Report 8433261 (Version 3)
Quarter: 2013Q4

REPORT INFORMATION
  Report Type: Spontaneous
  Country: US (occurrence: US)
  Receive Date: 20120229
  Receipt Date: 20131205
  Transmission Date: 20140711
  Serious: Yes (Death, Hospitalization)
  Sender: FDA-Public Use
  Company Number: US-BAYER-2012-018760

PATIENT
  Age: 27 Year
  Sex: Female
  Weight: 56.69 kg

DRUGS (9)
  1. YAZ [Suspect]
     Indication: CONTRACEPTION
     Dosage: UNK
     Dates: start: 20071212, end: 200906
  2. CHLORDIAZEPOXIDE [Concomitant]
     Indication: WITHDRAWAL SYNDROME
     Dosage: 25 MG, Q6H
     Route: 048
  3. VALTREX [Concomitant]
     Dosage: 500 MG, BID
     Route: 048
  4. PHENAZOPYRIDINE [Concomitant]
     Dosage: 200 MG, TID
     Route: 048
  5. SULFAMETHOXAZOLE/TRIMETHOPRIM [Concomitant]
     Dosage: 800/160 TABS/ BID
     Route: 048
  6. LITHIUM CARBONATE [Concomitant]
     Dosage: 300 MG/ 2 CS BID
     Route: 048
  7. ABILIFY [Concomitant]
     Dosage: 5 MG, 1 TAB HS
     Route: 048
  8. LAMICTAL [Concomitant]
     Dosage: 200 MG/ 2 TS DAILY
     Route: 048
  9. TOPAMAX [Concomitant]
     Dosage: 25 MG TAB/ QHS
     Route: 048

REACTIONS (7)
  - Cholecystitis acute [None]
  - Cholecystitis [None]
  - Pain [None]
  - Injury [None]
  - Abdominal pain lower [None]
  - Abasia [None]
  - Death [Fatal]
